FAERS Safety Report 13906404 (Version 1)
Quarter: 2017Q3

REPORT INFORMATION
  Report Type: Spontaneous
  Country: CA (occurrence: CA)
  Receive Date: 20170825
  Receipt Date: 20170825
  Transmission Date: 20171127
  Serious: Yes (Other)
  Sender: FDA-Public Use
  Company Number: CA-DUCHESNAY INC.-2025096

PATIENT
  Age: 32 Year
  Sex: Female

DRUGS (2)
  1. PREGVIT (MINERALS\POTASSIUM IODIDE\VITAMINS) [Suspect]
     Active Substance: MINERALS\POTASSIUM IODIDE\VITAMINS
  2. MTERYTI [Suspect]
     Active Substance: FOLIC ACID\MINERALS\VITAMINS
     Indication: PRODUCT USED FOR UNKNOWN INDICATION
     Dates: start: 20170818

REACTIONS (1)
  - Discoloured vomit [Unknown]

NARRATIVE: CASE EVENT DATE: 20170822
